FAERS Safety Report 9790921 (Version 1)
Quarter: 2013Q4

REPORT INFORMATION
  Report Type: Spontaneous
  Country: IT (occurrence: IT)
  Receive Date: 20131231
  Receipt Date: 20131231
  Transmission Date: 20140711
  Serious: Yes (Hospitalization)
  Sender: FDA-Public Use
  Company Number: IT-MYLANLABS-113AS20130652

PATIENT
  Age: 76 Year
  Sex: Female

DRUGS (3)
  1. METFORMIN [Suspect]
     Indication: DIABETES MELLITUS
     Dosage: 2000 G DAILY
     Route: 048
     Dates: start: 20130101, end: 20130904
  2. NOVORAPID [Suspect]
     Indication: DIABETES MELLITUS
     Dosage: 34 LU DAILY
     Route: 058
     Dates: start: 20130101, end: 20130904
  3. LANTUS [Suspect]
     Indication: DIABETES MELLITUS
     Dosage: 16 LU DAILY
     Route: 058
     Dates: start: 20130101, end: 20130904

REACTIONS (3)
  - Confusional state [Unknown]
  - Diabetic ketoacidosis [Unknown]
  - Hyperglycaemia [Unknown]
